FAERS Safety Report 9108721 (Version 2)
Quarter: 2013Q3

REPORT INFORMATION
  Report Type: Report from Study
  Country: US (occurrence: US)
  Receive Date: 20130222
  Receipt Date: 20130917
  Transmission Date: 20140515
  Serious: Yes (Other)
  Sender: FDA-Public Use
  Company Number: US-US-EMD SERONO, INC.-7194167

PATIENT
  Sex: Female

DRUGS (2)
  1. REBIF [Suspect]
     Indication: MULTIPLE SCLEROSIS
     Route: 058
     Dates: start: 20040128
  2. IBUPROFEN [Concomitant]
     Indication: BURNING SENSATION

REACTIONS (7)
  - Ventricular extrasystoles [Unknown]
  - Weight decreased [Recovered/Resolved]
  - Insomnia [Unknown]
  - Stress [Unknown]
  - Injection site pain [Not Recovered/Not Resolved]
  - Rash papular [Not Recovered/Not Resolved]
  - Fatigue [Unknown]
